FAERS Safety Report 19259044 (Version 1)
Quarter: 2021Q2

REPORT INFORMATION
  Report Type: Spontaneous
  Country: US (occurrence: US)
  Receive Date: 20210514
  Receipt Date: 20210514
  Transmission Date: 20210717
  Serious: Yes (Other)
  Sender: FDA-Public Use
  Company Number: NVSC2021US101604

PATIENT
  Age: 80 Year
  Sex: Male

DRUGS (1)
  1. TABRECTA [Suspect]
     Active Substance: CAPMATINIB
     Indication: NON-SMALL CELL LUNG CANCER
     Dosage: 400 MG, BID
     Route: 048

REACTIONS (3)
  - Malignant neoplasm progression [Recovering/Resolving]
  - Oedema peripheral [Recovering/Resolving]
  - Non-small cell lung cancer [Recovering/Resolving]
